FAERS Safety Report 18394841 (Version 2)
Quarter: 2020Q4

REPORT INFORMATION
  Report Type: Spontaneous
  Country: US (occurrence: US)
  Receive Date: 20201016
  Receipt Date: 20201024
  Transmission Date: 20210114
  Serious: Yes (Other)
  Sender: FDA-Public Use
  Company Number: US-FOUNDATIONCONSUMERHC-2020-US-020790

PATIENT
  Age: 79 Year
  Sex: Male
  Weight: 67.13 kg

DRUGS (1)
  1. CAMPHO PHENIQUE COLD SORE TREATMENT [Suspect]
     Active Substance: CAMPHOR (SYNTHETIC)\PHENOL
     Indication: ARTHROPOD BITE
     Dosage: APPLIED TO INSECT BITE
     Route: 061
     Dates: start: 20200919, end: 20200919

REACTIONS (5)
  - Pain in extremity [Not Recovered/Not Resolved]
  - Cellulitis [Not Recovered/Not Resolved]
  - Product use in unapproved indication [Recovered/Resolved]
  - Hypoaesthesia [Not Recovered/Not Resolved]
  - Intentional product misuse [Recovered/Resolved]

NARRATIVE: CASE EVENT DATE: 20200919
